FAERS Safety Report 9409691 (Version 1)
Quarter: 2013Q3

REPORT INFORMATION
  Report Type: Report from Study
  Country: AR (occurrence: AR)
  Receive Date: 20130719
  Receipt Date: 20130719
  Transmission Date: 20140515
  Serious: Yes (Hospitalization, Other)
  Sender: FDA-Public Use
  Company Number: PHHY2013AR076609

PATIENT
  Sex: Male

DRUGS (2)
  1. EXELON PATCH [Suspect]
     Indication: NERVOUS SYSTEM DISORDER
     Dosage: 4.6 MG, DAILY
     Route: 062
  2. EXELON PATCH [Suspect]
     Indication: MEMORY IMPAIRMENT
     Dosage: 9.5 MG, DAILY
     Route: 062

REACTIONS (5)
  - Head injury [Unknown]
  - Loss of consciousness [Unknown]
  - Syncope [Unknown]
  - Fall [Unknown]
  - Gait disturbance [Not Recovered/Not Resolved]
